FAERS Safety Report 9863149 (Version 2)
Quarter: 2014Q2

REPORT INFORMATION
  Report Type: Report from Study
  Country: US (occurrence: US)
  Receive Date: 20140203
  Receipt Date: 20140624
  Transmission Date: 20141212
  Serious: Yes (Hospitalization, Other)
  Sender: FDA-Public Use
  Company Number: US-ACTELION-A-US2014-94154

PATIENT
  Age: 41 Year
  Sex: Male

DRUGS (3)
  1. TRACLEER [Suspect]
     Indication: PULMONARY ARTERIAL HYPERTENSION
     Dosage: UNK
     Route: 048
     Dates: end: 201402
  2. ADCIRCA [Concomitant]
  3. SILDENAFIL [Concomitant]

REACTIONS (6)
  - Liver disorder [Unknown]
  - Cardiac disorder [Unknown]
  - Lung disorder [Unknown]
  - Pneumonia [Unknown]
  - Cardiomegaly [Unknown]
  - Swelling [Unknown]
